FAERS Safety Report 12126284 (Version 3)
Quarter: 2017Q3

REPORT INFORMATION
  Report Type: Report from Study
  Country: US (occurrence: US)
  Receive Date: 20160229
  Receipt Date: 20170804
  Transmission Date: 20171127
  Serious: Yes (Other)
  Sender: FDA-Public Use
  Company Number: US-ROCHE-1714980

PATIENT
  Age: 8 Year
  Sex: Male
  Weight: 26.2 kg

DRUGS (1)
  1. VISMODEGIB. [Suspect]
     Active Substance: VISMODEGIB
     Indication: MEDULLOBLASTOMA
     Route: 048
     Dates: start: 20141231, end: 20151201

REACTIONS (2)
  - Epiphyses premature fusion [Unknown]
  - Precocious puberty [Unknown]

NARRATIVE: CASE EVENT DATE: 20151209
